FAERS Safety Report 24964270 (Version 1)
Quarter: 2025Q1

REPORT INFORMATION
  Report Type: Spontaneous
  Country: US (occurrence: US)
  Receive Date: 20250213
  Receipt Date: 20250213
  Transmission Date: 20250408
  Serious: Yes (Hospitalization, Other)
  Sender: HIKMA
  Company Number: US-HIKMA PHARMACEUTICALS-US-H14001-25-01006

PATIENT

DRUGS (33)
  1. ANAKINRA [Suspect]
     Active Substance: ANAKINRA
     Dosage: 200 MILLIGRAM, QD
     Route: 065
     Dates: start: 20241015
  2. ANAKINRA [Suspect]
     Active Substance: ANAKINRA
     Indication: Leukocytosis
     Route: 065
     Dates: start: 20240612, end: 20240703
  3. ANAKINRA [Suspect]
     Active Substance: ANAKINRA
     Indication: Haemophagocytic lymphohistiocytosis
     Route: 065
     Dates: start: 20240228, end: 20240510
  4. ANAKINRA [Suspect]
     Active Substance: ANAKINRA
     Route: 065
     Dates: start: 20240914, end: 20241006
  5. DEXAMETHASONE [Suspect]
     Active Substance: DEXAMETHASONE
     Indication: Haemophagocytic lymphohistiocytosis
     Dosage: 25 MILLIGRAM, QD
     Route: 065
     Dates: start: 20240703, end: 20240823
  6. EMAPALUMAB [Suspect]
     Active Substance: EMAPALUMAB
     Indication: Haemophagocytic lymphohistiocytosis
     Route: 065
     Dates: start: 20240704, end: 20240715
  7. ENOXAPARIN [Suspect]
     Active Substance: ENOXAPARIN
     Indication: Superficial vein thrombosis
     Route: 065
  8. FIDAXOMICIN [Suspect]
     Active Substance: FIDAXOMICIN
     Indication: Clostridium difficile infection
     Route: 065
  9. GANCICLOVIR [Suspect]
     Active Substance: GANCICLOVIR
     Indication: Cytomegalovirus viraemia
     Dosage: 5 MILLIGRAM/KILOGRAM, Q12H
     Route: 065
     Dates: start: 20240614, end: 20240716
  10. HYDROCORTISONE [Suspect]
     Active Substance: HYDROCORTISONE
     Indication: Haemophagocytic lymphohistiocytosis
     Route: 065
     Dates: start: 20241029
  11. HYDROCORTISONE [Suspect]
     Active Substance: HYDROCORTISONE
     Route: 065
     Dates: start: 20240823, end: 20241216
  12. HUMAN IMMUNOGLOBULIN G [Suspect]
     Active Substance: HUMAN IMMUNOGLOBULIN G
     Indication: Product used for unknown indication
     Route: 065
  13. ITRACONAZOLE [Suspect]
     Active Substance: ITRACONAZOLE
     Indication: Cytomegalovirus viraemia
     Route: 065
     Dates: end: 202409
  14. JAKAFI [Suspect]
     Active Substance: RUXOLITINIB
     Indication: Haemophagocytic lymphohistiocytosis
     Route: 065
     Dates: start: 20240522, end: 20240530
  15. JAKAFI [Suspect]
     Active Substance: RUXOLITINIB
     Route: 065
     Dates: start: 20240531, end: 20240604
  16. JAKAFI [Suspect]
     Active Substance: RUXOLITINIB
     Route: 065
     Dates: start: 20240605, end: 20240607
  17. JAKAFI [Suspect]
     Active Substance: RUXOLITINIB
     Route: 065
     Dates: start: 20240607, end: 20240902
  18. METHYLPREDNISOLONE [Suspect]
     Active Substance: METHYLPREDNISOLONE
     Indication: Haemophagocytic lymphohistiocytosis
     Route: 065
     Dates: start: 20240201, end: 20240310
  19. METHYLPREDNISOLONE [Suspect]
     Active Substance: METHYLPREDNISOLONE
     Route: 065
     Dates: start: 20240521, end: 20240525
  20. METHYLPREDNISOLONE [Suspect]
     Active Substance: METHYLPREDNISOLONE
     Route: 065
     Dates: start: 20240602, end: 20240605
  21. METHYLPREDNISOLONE [Suspect]
     Active Substance: METHYLPREDNISOLONE
     Route: 065
     Dates: start: 20240905, end: 20240907
  22. PREDNISOLONE [Suspect]
     Active Substance: PREDNISOLONE
     Indication: Haemophagocytic lymphohistiocytosis
     Route: 065
     Dates: start: 20240407, end: 20240430
  23. PREDNISOLONE [Suspect]
     Active Substance: PREDNISOLONE
     Route: 065
     Dates: start: 20240605, end: 20240621
  24. PREDNISOLONE [Suspect]
     Active Substance: PREDNISOLONE
     Route: 065
     Dates: start: 20240621, end: 20240628
  25. PREDNISOLONE [Suspect]
     Active Substance: PREDNISOLONE
     Route: 065
     Dates: start: 20240628, end: 20240703
  26. PREDNISOLONE [Suspect]
     Active Substance: PREDNISOLONE
     Route: 065
     Dates: start: 20241217
  27. PREDNISONE [Suspect]
     Active Substance: PREDNISONE
     Dosage: 25 MILLIGRAM, QD
     Route: 065
     Dates: start: 202412
  28. PREDNISONE [Suspect]
     Active Substance: PREDNISONE
     Indication: Haemophagocytic lymphohistiocytosis
     Route: 065
  29. PREDNISONE [Suspect]
     Active Substance: PREDNISONE
     Route: 065
     Dates: start: 20241029
  30. TOCILIZUMAB [Suspect]
     Active Substance: TOCILIZUMAB
     Indication: Haemophagocytic lymphohistiocytosis
     Route: 065
     Dates: start: 20240510
  31. TOCILIZUMAB [Suspect]
     Active Substance: TOCILIZUMAB
     Route: 065
     Dates: start: 20240706
  32. VALGANCICLOVIR [Suspect]
     Active Substance: VALGANCICLOVIR
     Indication: Cytomegalovirus viraemia
     Route: 048
     Dates: start: 20241017, end: 202410
  33. VANCOMYCIN [Suspect]
     Active Substance: VANCOMYCIN
     Indication: Clostridium difficile infection
     Route: 048

REACTIONS (33)
  - Pyrexia [Not Recovered/Not Resolved]
  - Rash [Unknown]
  - Multisystem inflammatory syndrome in children [Unknown]
  - Parvovirus infection [Unknown]
  - Haemophagocytic lymphohistiocytosis [Not Recovered/Not Resolved]
  - Leukocytosis [Unknown]
  - Hyperferritinaemia [Not Recovered/Not Resolved]
  - Interleukin level increased [Unknown]
  - Chemokine increased [Unknown]
  - Epstein-Barr viraemia [Unknown]
  - Oral candidiasis [Unknown]
  - Clostridium difficile infection [Unknown]
  - Superficial vein thrombosis [Unknown]
  - Oxygen therapy [Unknown]
  - Cytomegalovirus viraemia [Unknown]
  - Pulmonary oedema [Unknown]
  - Proteinuria [Unknown]
  - Pneumonia aspiration [Unknown]
  - Histoplasmosis [Unknown]
  - Acute respiratory failure [Not Recovered/Not Resolved]
  - Inflammation [Not Recovered/Not Resolved]
  - Asthenia [Unknown]
  - Hypotension [Not Recovered/Not Resolved]
  - Dysphagia [Unknown]
  - Hypernatraemia [Recovering/Resolving]
  - Polyuria [Unknown]
  - Hyponatraemia [Recovering/Resolving]
  - Acute kidney injury [Recovered/Resolved]
  - Hyperuricaemia [Unknown]
  - Dermatitis exfoliative generalised [Unknown]
  - Adrenal insufficiency [Unknown]
  - Hypercalcaemia [Recovering/Resolving]
  - Drug reaction with eosinophilia and systemic symptoms [Unknown]

NARRATIVE: CASE EVENT DATE: 20240210
